FAERS Safety Report 15617425 (Version 1)
Quarter: 2018Q4

REPORT INFORMATION
  Report Type: Spontaneous
  Country: AU (occurrence: AU)
  Receive Date: 20181114
  Receipt Date: 20181114
  Transmission Date: 20190205
  Serious: Yes (Other)
  Sender: FDA-Public Use
  Company Number: AU-CELGENEUS-AUS-20181102170

PATIENT
  Sex: Female

DRUGS (1)
  1. REVLIMID [Suspect]
     Active Substance: LENALIDOMIDE
     Indication: OCCUPATIONAL EXPOSURE TO PRODUCT
     Dosage: NOT APPLICABLE
     Route: 065

REACTIONS (2)
  - Anaphylactic reaction [Unknown]
  - Accidental exposure to product [Unknown]
